FAERS Safety Report 7292638-1 (Version None)
Quarter: 2011Q1

REPORT INFORMATION
  Report Type: 
  Country: None (occurrence: None)
  Receive Date: 20110203
  Receipt Date: 20110118
  Transmission Date: 20110831
  Serious: Yes (Other)
  Sender: FDA-Public Use
  Company Number: 026107

PATIENT
  Sex: Female

DRUGS (4)
  1. PREDNISOLONE [Suspect]
  2. DEXTROPROPOXYPHENE [Suspect]
  3. PARACETAMOL [Suspect]
     Dosage: (2.6 G)
  4. ORAL CONTRACEPTIVE NOS [Concomitant]

REACTIONS (3)
  - PREGNANCY ON ORAL CONTRACEPTIVE [None]
  - DRUG EXPOSURE DURING PREGNANCY [None]
  - ABORTION INDUCED [None]
